FAERS Safety Report 25829574 (Version 2)
Quarter: 2025Q4

REPORT INFORMATION
  Report Type: Report from Study
  Country: EU (occurrence: EU)
  Receive Date: 20250922
  Receipt Date: 20251231
  Transmission Date: 20260117
  Serious: No
  Sender: TRAVERE THERAPEUTICS
  Company Number: EU-BEH-2025215467

PATIENT
  Age: 62 Year
  Sex: Female
  Weight: 61.8 kg

DRUGS (2)
  1. FILSPARI [Suspect]
     Active Substance: SPARSENTAN
     Indication: IgA nephropathy
     Dosage: 200 MG
     Route: 065
  2. FILSPARI [Suspect]
     Active Substance: SPARSENTAN
     Dosage: 400 MG
     Route: 065
     Dates: start: 2025

REACTIONS (1)
  - Hypotension [Recovered/Resolved]

NARRATIVE: CASE EVENT DATE: 20250101
